FAERS Safety Report 10971709 (Version 4)
Quarter: 2015Q4

REPORT INFORMATION
  Report Type: Report from Study
  Country: BR (occurrence: BR)
  Receive Date: 20150331
  Receipt Date: 20151006
  Transmission Date: 20160304
  Serious: Yes (Other)
  Sender: FDA-Public Use
  Company Number: PHHY2015BR036141

PATIENT
  Sex: Male
  Weight: 72 kg

DRUGS (2)
  1. INTERFERON ALFA NOS [Suspect]
     Active Substance: INTERFERON ALFA-2A OR INTERFERON ALFA-2B
     Indication: LIVER DISORDER
     Dosage: UNK, MONDAY, WEDNESDAY AND FRIDAY
     Route: 058
  2. SANDOSTATIN LAR DEPOT [Suspect]
     Active Substance: OCTREOTIDE ACETATE
     Indication: HEPATIC MASS
     Dosage: 1 DF (INJECTION), EACH 30 DAYS
     Route: 030
     Dates: start: 2013

REACTIONS (5)
  - Weight decreased [Recovered/Resolved]
  - Eating disorder [Unknown]
  - Cardiac failure [Recovering/Resolving]
  - Asthenia [Unknown]
  - Atrioventricular block [Unknown]
